FAERS Safety Report 6380810-4 (Version None)
Quarter: 2009Q3

REPORT INFORMATION
  Report Type: 
  Country: None (occurrence: None)
  Receive Date: 20090925
  Receipt Date: 20090925
  Transmission Date: 20100115
  Serious: Yes (Disabling, Other)
  Sender: FDA-Public Use
  Company Number: None

PATIENT
  Age: 6 Year
  Sex: Male
  Weight: 26.7622 kg

DRUGS (3)
  1. AZITHROMYCIN [Suspect]
     Indication: EAR DISORDER
     Dosage: 2 TSPS 1ST DAY, 1TSP NEXT FOUR 1XDAY PO
     Route: 048
     Dates: start: 20090916, end: 20090917
  2. AZITHROMYCIN [Suspect]
     Indication: SINUS DISORDER
     Dosage: 2 TSPS 1ST DAY, 1TSP NEXT FOUR 1XDAY PO
     Route: 048
     Dates: start: 20090916, end: 20090917
  3. AZITHROMYCIN [Suspect]
     Indication: UPPER RESPIRATORY TRACT INFECTION
     Dosage: 2 TSPS 1ST DAY, 1TSP NEXT FOUR 1XDAY PO
     Route: 048
     Dates: start: 20090916, end: 20090917

REACTIONS (7)
  - BLISTER [None]
  - BURNING SENSATION [None]
  - DRY SKIN [None]
  - ERYTHEMA [None]
  - HYPERSENSITIVITY [None]
  - OEDEMA PERIPHERAL [None]
  - SKIN EXFOLIATION [None]
